FAERS Safety Report 19976084 (Version 2)
Quarter: 2021Q4

REPORT INFORMATION
  Report Type: Report from Study
  Country: FR (occurrence: FR)
  Receive Date: 20211021
  Receipt Date: 20211026
  Transmission Date: 20220303
  Serious: Yes (Other)
  Sender: FDA-Public Use
  Company Number: DE-ROCHE-2931100

PATIENT
  Age: 64 Year
  Sex: Female

DRUGS (4)
  1. ATEZOLIZUMAB [Suspect]
     Active Substance: ATEZOLIZUMAB
     Indication: Ovarian cancer
     Dosage: ON 03/NOV/2017, RECEIVED LAST DOSE OF ATEZOLIZUMAB BEFORE THE EVENT?MOST RECENT DOSE OF ATEZOLIZUMAB
     Route: 041
     Dates: start: 20170523
  2. BEVACIZUMAB [Suspect]
     Active Substance: BEVACIZUMAB
     Indication: Ovarian cancer
     Dosage: ON 03/NOV/2017, RECEIVED LAST DOSE OF BEVACIZUMAB BEFORE THE EVENT?MOST RECENT DOSE OF BEVACIZUMAB P
     Route: 042
     Dates: start: 20170523
  3. CARBOPLATIN [Concomitant]
     Active Substance: CARBOPLATIN
     Indication: Ovarian cancer
     Dosage: ON 20/OCT/2017, RECEIVED LAST DOSE OF CARBOPLATIN BEFORE THE EVENT.
     Route: 042
     Dates: start: 20170523, end: 20171020
  4. DOXORUBICIN [Concomitant]
     Active Substance: DOXORUBICIN
     Indication: Ovarian cancer
     Dosage: ON 20/OCT/2017, RECEIVED LAST DOSE OF PEGYLATED LIPOSOMAL DOXORUBICIN (PLD) BEFORE THE EVENT.
     Route: 042
     Dates: start: 20170523, end: 20171020

REACTIONS (1)
  - Hypothyroidism [Not Recovered/Not Resolved]

NARRATIVE: CASE EVENT DATE: 20171121
